FAERS Safety Report 21511389 (Version 1)
Quarter: 2022Q4

REPORT INFORMATION
  Report Type: Spontaneous
  Country: US (occurrence: US)
  Receive Date: 20221027
  Receipt Date: 20221027
  Transmission Date: 20230112
  Serious: No
  Sender: FDA-Public Use
  Company Number: US-GLAXOSMITHKLINE-US2022152183

PATIENT
  Sex: Female

DRUGS (2)
  1. ZEJULA [Suspect]
     Active Substance: NIRAPARIB
     Indication: Ovarian cancer
     Dosage: UNK
  2. ZEJULA [Suspect]
     Active Substance: NIRAPARIB
     Dosage: 200 MG, QD
     Dates: start: 20221004

REACTIONS (7)
  - Asthenia [Unknown]
  - Blood glucose increased [Unknown]
  - Dysuria [Unknown]
  - Cyanosis [Unknown]
  - Change of bowel habit [Unknown]
  - Hypertension [Unknown]
  - Ill-defined disorder [Unknown]
